FAERS Safety Report 12229801 (Version 1)
Quarter: 2016Q1

REPORT INFORMATION
  Report Type: Spontaneous
  Country: US (occurrence: None)
  Receive Date: 20160331
  Receipt Date: 20160331
  Transmission Date: 20160526
  Serious: No
  Sender: FDA-Public Use
  Company Number: None

PATIENT
  Age: 66 Year
  Sex: Female

DRUGS (1)
  1. NPLATE [Suspect]
     Active Substance: ROMIPLOSTIM
     Indication: IMMUNE THROMBOCYTOPENIC PURPURA
     Route: 058
     Dates: start: 20150916

REACTIONS (5)
  - Paraesthesia [None]
  - Abdominal pain [None]
  - Abdominal discomfort [None]
  - Abdominal distension [None]
  - Insomnia [None]

NARRATIVE: CASE EVENT DATE: 201512
